FAERS Safety Report 10298990 (Version 3)
Quarter: 2015Q3

REPORT INFORMATION
  Report Type: Spontaneous
  Country: US (occurrence: US)
  Receive Date: 20140711
  Receipt Date: 20150814
  Transmission Date: 20151125
  Serious: No
  Sender: FDA-Public Use
  Company Number: US-GILEAD-2013-0082634

PATIENT
  Age: 69 Year
  Sex: Male

DRUGS (3)
  1. LETAIRIS [Suspect]
     Active Substance: AMBRISENTAN
     Dosage: 10 MG, QD
     Route: 048
  2. ADCIRCA [Concomitant]
     Active Substance: TADALAFIL
  3. LETAIRIS [Suspect]
     Active Substance: AMBRISENTAN
     Indication: PULMONARY ARTERIAL HYPERTENSION
     Dosage: 5 MG, QD
     Route: 048
     Dates: start: 20130810

REACTIONS (8)
  - Diarrhoea [Unknown]
  - Dizziness [Unknown]
  - Oedema peripheral [Unknown]
  - Oedema [Unknown]
  - Pain [Unknown]
  - Gait disturbance [Unknown]
  - Dyspnoea [Unknown]
  - Malaise [Unknown]
